FAERS Safety Report 25638815 (Version 2)
Quarter: 2025Q3

REPORT INFORMATION
  Report Type: Spontaneous
  Country: JP (occurrence: JP)
  Receive Date: 20250804
  Receipt Date: 20250905
  Transmission Date: 20251021
  Serious: Yes (Hospitalization, Other)
  Sender: ARDELYX
  Company Number: JP-ARDELYX-2025ARDX005848

PATIENT
  Age: 8 Decade
  Sex: Male

DRUGS (1)
  1. TENAPANOR HYDROCHLORIDE [Suspect]
     Active Substance: TENAPANOR HYDROCHLORIDE
     Indication: Product used for unknown indication
     Route: 048

REACTIONS (2)
  - Heat illness [Unknown]
  - Cardiac failure congestive [Unknown]
